FAERS Safety Report 5646406-4 (Version None)
Quarter: 2008Q1

REPORT INFORMATION
  Report Type: 
  Country: None (occurrence: None)
  Receive Date: 20080227
  Receipt Date: 20080212
  Transmission Date: 20080703
  Serious: Yes (Hospitalization)
  Sender: FDA-Public Use
  Company Number: DSA_31457_2008

PATIENT
  Age: 69 Year
  Sex: Male

DRUGS (3)
  1. ENALAPRIL MALEATE [Suspect]
     Indication: HYPERTENSION
     Dosage: (20 MG QD)
     Dates: start: 20061201, end: 20070201
  2. TACROLIMUS [Suspect]
     Indication: IMMUNOSUPPRESSANT DRUG THERAPY
     Dosage: (DF)
     Dates: start: 20030101
  3. NIFEDIPINE [Concomitant]

REACTIONS (9)
  - DEHYDRATION [None]
  - DRUG INTERACTION [None]
  - ELECTROLYTE IMBALANCE [None]
  - GASTROENTERITIS [None]
  - LEFT ATRIAL DILATATION [None]
  - RENAL FAILURE [None]
  - RENAL VESSEL DISORDER [None]
  - RIGHT ATRIAL DILATATION [None]
  - VASOCONSTRICTION [None]
